FAERS Safety Report 15232801 (Version 3)
Quarter: 2018Q3

REPORT INFORMATION
  Report Type: Report from Study
  Country: CH (occurrence: CH)
  Receive Date: 20180802
  Receipt Date: 20180831
  Transmission Date: 20181010
  Serious: Yes (Hospitalization)
  Sender: FDA-Public Use
  Company Number: CH-OTSUKA-2018_027309

PATIENT
  Age: 75 Year
  Sex: Female

DRUGS (3)
  1. DECITABINE. [Suspect]
     Active Substance: DECITABINE
     Indication: ACUTE MYELOID LEUKAEMIA
     Dosage: 35 MG, IN 1 DAY
     Route: 042
     Dates: start: 20180625
  2. IMBRUVICA [Suspect]
     Active Substance: IBRUTINIB
     Indication: ACUTE MYELOID LEUKAEMIA
     Dosage: 560 MG, IN 1 DAY
     Route: 048
     Dates: start: 20180705
  3. IMBRUVICA [Suspect]
     Active Substance: IBRUTINIB
     Dosage: 560 MG, IN 1 DAY
     Route: 048
     Dates: start: 20180607, end: 20180624

REACTIONS (4)
  - Bronchopulmonary aspergillosis [Recovering/Resolving]
  - Cerebral aspergillosis [Not Recovered/Not Resolved]
  - Nervous system disorder [Recovering/Resolving]
  - Brain abscess [Not Recovered/Not Resolved]

NARRATIVE: CASE EVENT DATE: 20180711
